FAERS Safety Report 7870215-9 (Version None)
Quarter: 2011Q4

REPORT INFORMATION
  Report Type: 
  Country: None (occurrence: None)
  Receive Date: 20111028
  Receipt Date: 20111028
  Transmission Date: 20120403
  Serious: Yes (Hospitalization)
  Sender: FDA-Public Use
  Company Number: None

PATIENT
  Age: 52 Year
  Sex: Male
  Weight: 136.3 kg

DRUGS (1)
  1. EXENATIDE [Suspect]
     Indication: DIABETES MELLITUS
     Dosage: 1.2 ML, BID, SQ
     Route: 058
     Dates: start: 20110419, end: 20110517

REACTIONS (3)
  - RASH [None]
  - ANAPHYLACTIC REACTION [None]
  - ANGIOEDEMA [None]
